FAERS Safety Report 14709289 (Version 4)
Quarter: 2019Q1

REPORT INFORMATION
  Report Type: Spontaneous
  Country: NO (occurrence: NO)
  Receive Date: 20180403
  Receipt Date: 20190313
  Transmission Date: 20190417
  Serious: Yes (Other)
  Sender: FDA-Public Use
  Company Number: IND-NO-009507513-1803NOR010443

PATIENT
  Age: 41 Year
  Sex: Male

DRUGS (9)
  1. ARCOXIA [Suspect]
     Active Substance: ETORICOXIB
     Dosage: 60 MG, UNK
     Route: 048
     Dates: start: 20151019
  2. ARCOXIA [Suspect]
     Active Substance: ETORICOXIB
     Indication: OSTEOARTHRITIS
     Dosage: 120 MG, 7 TABLETS
     Route: 048
     Dates: start: 20130514
  3. ARCOXIA [Suspect]
     Active Substance: ETORICOXIB
     Dosage: 120 MG, 7 TABLETS
     Route: 048
     Dates: start: 20140514
  4. ARCOXIA [Suspect]
     Active Substance: ETORICOXIB
     Dosage: 90 MG, UNK
     Route: 048
     Dates: end: 201603
  5. ARCOXIA [Suspect]
     Active Substance: ETORICOXIB
     Dosage: UNK
     Route: 048
     Dates: start: 20160223, end: 20160310
  6. PARACET [Concomitant]
     Active Substance: ACETAMINOPHEN
     Dosage: UNK
     Dates: start: 20140514
  7. RINEXIN [Concomitant]
     Active Substance: PHENYLPROPANOLAMINE
     Dosage: UNK
  8. CODAXOL [Concomitant]
     Active Substance: ACETAMINOPHEN\CODEINE PHOSPHATE
     Dosage: UNK
     Dates: start: 20140514
  9. ARCOXIA [Suspect]
     Active Substance: ETORICOXIB
     Dosage: 90 MG, ONCE DAILY (QD) FOR 4-6 WEEKS
     Route: 048
     Dates: start: 20140702

REACTIONS (16)
  - Dysgeusia [Unknown]
  - Dizziness [Unknown]
  - Atrial fibrillation [Unknown]
  - Hypertension [Unknown]
  - Nausea [Unknown]
  - Respiration abnormal [Unknown]
  - Headache [Unknown]
  - Atrial fibrillation [Unknown]
  - Joint effusion [Unknown]
  - Osteoarthritis [Recovering/Resolving]
  - Drug ineffective [Unknown]
  - Dyspnoea [Unknown]
  - Tinnitus [Unknown]
  - Meniscus injury [Recovered/Resolved]
  - Arthralgia [Unknown]
  - Chest pain [Unknown]

NARRATIVE: CASE EVENT DATE: 2013
